FAERS Safety Report 17544770 (Version 1)
Quarter: 2020Q1

REPORT INFORMATION
  Report Type: Spontaneous
  Country: FR (occurrence: FR)
  Receive Date: 20200316
  Receipt Date: 20200316
  Transmission Date: 20200409
  Serious: Yes (Hospitalization)
  Sender: FDA-Public Use
  Company Number: FR-ACCORD-175566

PATIENT
  Age: 90 Year
  Sex: Female
  Weight: 59.3 kg

DRUGS (15)
  1. ZOCOR [Concomitant]
     Active Substance: SIMVASTATIN
     Dosage: STRENGTH: 20 MG
  2. LANTUS [Concomitant]
     Active Substance: INSULIN GLARGINE
  3. KARDEGIC [Concomitant]
     Active Substance: ASPIRIN DL-LYSINE
     Dosage: STRENGTH: 160 MG
  4. BIPRETERAX [Concomitant]
     Active Substance: INDAPAMIDE\PERINDOPRIL
  5. NOVORAPID [Concomitant]
     Active Substance: INSULIN ASPART
  6. NEBIVOLOL. [Concomitant]
     Active Substance: NEBIVOLOL
  7. OROCAL D3 [Concomitant]
     Active Substance: CALCIUM CARBONATE\CHOLECALCIFEROL
  8. URISPAS [Concomitant]
     Active Substance: FLAVOXATE HYDROCHLORIDE
  9. MOVICOL [Concomitant]
     Active Substance: POLYETHYLENE GLYCOL 3350\POTASSIUM CHLORIDE\SODIUM BICARBONATE\SODIUM CHLORIDE
  10. EDUCTYL [Concomitant]
     Active Substance: POTASSIUM BITARTRATE\SODIUM BICARBONATE
  11. GALVUS [Concomitant]
     Active Substance: VILDAGLIPTIN
  12. AMLOR [Concomitant]
     Active Substance: AMLODIPINE BESYLATE
     Dosage: STRENGTH: 5 MG
  13. ART [Concomitant]
     Active Substance: DIACEREIN
     Dosage: STRENGTH: 50 MG
  14. NOVONORM [Concomitant]
     Active Substance: REPAGLINIDE
     Dosage: STRENGTH: 0.5 MG
  15. ANASTROZOLE. [Suspect]
     Active Substance: ANASTROZOLE
     Indication: BREAST CANCER
     Route: 048
     Dates: start: 201512, end: 201808

REACTIONS (5)
  - Condition aggravated [Not Recovered/Not Resolved]
  - Gastrointestinal motility disorder [Recovered/Resolved]
  - Spinal fracture [Recovered/Resolved with Sequelae]
  - Osteoporosis [Not Recovered/Not Resolved]
  - Urinary retention [Recovered/Resolved]

NARRATIVE: CASE EVENT DATE: 20180510
